FAERS Safety Report 16065008 (Version 1)
Quarter: 2019Q1

REPORT INFORMATION
  Report Type: Report from Study
  Country: None (occurrence: DE)
  Receive Date: 20190313
  Receipt Date: 20190313
  Transmission Date: 20190418
  Serious: Yes (Hospitalization)
  Sender: FDA-Public Use
  Company Number: DE-ABBVIE-19K-062-2657158-00

PATIENT
  Age: 43 Year
  Sex: Female
  Weight: 36 kg

DRUGS (1)
  1. HUMIRA [Suspect]
     Active Substance: ADALIMUMAB
     Indication: CROHN^S DISEASE
     Route: 058
     Dates: start: 20160304, end: 20181201

REACTIONS (3)
  - Decubitus ulcer [Not Recovered/Not Resolved]
  - Pneumonia [Recovered/Resolved]
  - Gastrointestinal disorder [Recovered/Resolved with Sequelae]

NARRATIVE: CASE EVENT DATE: 20181201
